FAERS Safety Report 21255880 (Version 2)
Quarter: 2023Q1

REPORT INFORMATION
  Report Type: 
  Country: CO (occurrence: CO)
  Receive Date: 20220825
  Receipt Date: 20230106
  Transmission Date: 20230418
  Serious: Yes (Death)
  Sender: FDA-Public Use
  Company Number: CO-Teikoku Pharma USA-TPU2022-00760

PATIENT
  Age: 92 Year
  Sex: Male

DRUGS (1)
  1. LIDOCAINE [Suspect]
     Active Substance: LIDOCAINE
     Indication: Pain
     Route: 061
     Dates: start: 20220615

REACTIONS (1)
  - Death [Fatal]

NARRATIVE: CASE EVENT DATE: 20220723
